FAERS Safety Report 5225809-6 (Version None)
Quarter: 2007Q1

REPORT INFORMATION
  Report Type: 
  Country: None (occurrence: None)
  Receive Date: 20070201
  Receipt Date: 20070119
  Transmission Date: 20070707
  Serious: Yes (Other)
  Sender: FDA-Public Use
  Company Number: PHFR2007GB00603

PATIENT
  Sex: Female

DRUGS (3)
  1. TEGRETOL [Suspect]
     Indication: MUSCLE SPASMS
     Route: 065
  2. ORAL CONTRACEPTIVE NOS [Concomitant]
     Indication: CONTRACEPTION
     Route: 048
  3. ORAL CONTRACEPTIVE NOS [Concomitant]
     Dosage: 'TRIPLED DOSE'

REACTIONS (1)
  - BONE SARCOMA [None]
